FAERS Safety Report 6947207-7 (Version None)
Quarter: 2010Q3

REPORT INFORMATION
  Report Type: 
  Country: None (occurrence: None)
  Receive Date: 20100827
  Receipt Date: 20090902
  Transmission Date: 20110219
  Serious: No
  Sender: FDA-Public Use
  Company Number: US-ABBOTT-09P-163-0595652-00

PATIENT
  Sex: Male
  Weight: 74.91 kg

DRUGS (7)
  1. NIASPAN [Suspect]
     Indication: HIGH DENSITY LIPOPROTEIN DECREASED
     Dates: start: 20090501
  2. LIPITOR [Concomitant]
     Indication: BLOOD CHOLESTEROL INCREASED
  3. ATENOLOL [Concomitant]
     Indication: PRODUCT USED FOR UNKNOWN INDICATION
  4. ASPIRIN [Concomitant]
     Indication: PRODUCT USED FOR UNKNOWN INDICATION
  5. UNKNOWN SLEEPING PILL [Concomitant]
     Indication: SLEEP DISORDER THERAPY
  6. KLONOPIN [Concomitant]
     Indication: ANXIETY
  7. XANAX [Concomitant]
     Indication: ANXIETY

REACTIONS (2)
  - FLUSHING [None]
  - HIGH DENSITY LIPOPROTEIN DECREASED [None]
